FAERS Safety Report 8447536-4 (Version None)
Quarter: 2012Q2

REPORT INFORMATION
  Report Type: 
  Country: None (occurrence: None)
  Receive Date: 20120619
  Receipt Date: 20120613
  Transmission Date: 20120825
  Serious: Yes (Death, Hospitalization)
  Sender: FDA-Public Use
  Company Number: JP-ASTELLAS-2010JP007416

PATIENT
  Sex: Female

DRUGS (14)
  1. MIYA BM [Concomitant]
     Indication: INFECTION PROPHYLAXIS
     Dosage: UNK
     Route: 048
     Dates: start: 20081114, end: 20090117
  2. CELLSEPT [Concomitant]
     Indication: IMMUNOSUPPRESSANT DRUG THERAPY
     Dosage: UNK
     Route: 048
     Dates: start: 20081120
  3. URSO 250 [Concomitant]
     Indication: HEPATIC FUNCTION ABNORMAL
     Dosage: 2 G, TID
     Route: 048
     Dates: start: 20081114, end: 20090117
  4. LAC B [Concomitant]
     Indication: INFECTION PROPHYLAXIS
     Dosage: 2 G, TID
     Route: 048
     Dates: start: 20081114, end: 20090117
  5. CEFAZOLIN SODIUM [Concomitant]
     Indication: INFECTION PROPHYLAXIS
     Dosage: 1 G, TID
     Route: 048
     Dates: start: 20081114, end: 20090117
  6. MARZULENE-S [Concomitant]
     Indication: GASTRITIS PROPHYLAXIS
     Dosage: 1 G, TID
     Route: 048
     Dates: start: 20081114, end: 20090117
  7. FUNGUARD [Concomitant]
     Indication: ANTIFUNGAL PROPHYLAXIS
     Route: 065
  8. CORTICOSTEROID NOS [Concomitant]
     Indication: IMMUNOSUPPRESSANT DRUG THERAPY
     Dosage: 62.5 MG, UNKNOWN/D
     Route: 065
  9. VANCOMYCIN [Concomitant]
     Indication: INFECTION PROPHYLAXIS
     Dosage: 0.5 G, TID
     Route: 048
     Dates: start: 20081114, end: 20090117
  10. CORTICOSTEROID NOS [Concomitant]
     Indication: LIVER TRANSPLANT
     Route: 065
  11. RITUXAN [Concomitant]
     Route: 065
  12. FLUMARIN                           /00963302/ [Concomitant]
     Indication: ANTIBIOTIC PROPHYLAXIS
     Route: 065
  13. PROGRAF [Suspect]
     Indication: IMMUNOSUPPRESSANT DRUG THERAPY
     Dosage: 0.85 MG, BID
     Route: 048
     Dates: start: 20081107, end: 20090117
  14. BARACLUDE [Concomitant]
     Indication: HEPATITIS B
     Dosage: 0.5 MG, UID/QD
     Route: 048
     Dates: start: 20081114, end: 20090117

REACTIONS (5)
  - PNEUMOCYSTIS JIROVECI PNEUMONIA [None]
  - SEPSIS [None]
  - DEVICE RELATED INFECTION [None]
  - ENTEROCOLITIS [None]
  - PNEUMONIA STAPHYLOCOCCAL [None]
